FAERS Safety Report 4498937-0 (Version None)
Quarter: 2004Q4

REPORT INFORMATION
  Report Type: 
  Country: None (occurrence: None)
  Receive Date: 20041108
  Receipt Date: 20041024
  Transmission Date: 20050328
  Serious: Yes (Disabling)
  Sender: FDA-Public Use
  Company Number: CH-2004-034052

PATIENT
  Sex: Female
  Weight: 78 kg

DRUGS (1)
  1. ULTRAVIST 300 [Suspect]
     Indication: SCAN BRAIN
     Dosage: 40 ML, INTRAVENOUS
     Route: 042
     Dates: start: 20040818, end: 20040818

REACTIONS (3)
  - COMPARTMENT SYNDROME [None]
  - MEDICATION ERROR [None]
  - SENSORY LOSS [None]
